FAERS Safety Report 26102961 (Version 1)
Quarter: 2025Q4

REPORT INFORMATION
  Report Type: Spontaneous
  Country: JP (occurrence: JP)
  Receive Date: 20251128
  Receipt Date: 20251128
  Transmission Date: 20260118
  Serious: Yes (Other)
  Sender: SUNOVION
  Company Number: JP-SMPA-2025SMP010082

PATIENT
  Sex: Female

DRUGS (3)
  1. LATUDA [Suspect]
     Active Substance: LURASIDONE HYDROCHLORIDE
     Indication: Schizophrenia
     Dosage: 20 MG, QD
     Route: 048
  2. QUETIAPINE FUMARATE [Concomitant]
     Active Substance: QUETIAPINE FUMARATE
     Dosage: UNK
  3. RISPERIDONE [Concomitant]
     Active Substance: RISPERIDONE
     Dosage: 6 MG, QD

REACTIONS (2)
  - Schizophrenia [Recovered/Resolved]
  - Prescribed underdose [Unknown]
